FAERS Safety Report 8625479-0 (Version None)
Quarter: 2012Q3

REPORT INFORMATION
  Report Type: 
  Country: None (occurrence: None)
  Receive Date: 20120827
  Receipt Date: 20070801
  Transmission Date: 20120928
  Serious: Yes (Death, Other)
  Sender: FDA-Public Use
  Company Number: CO-PFIZER INC-2012205653

PATIENT
  Age: 78 Year
  Sex: Female

DRUGS (10)
  1. LIPITOR [Suspect]
     Indication: DYSLIPIDAEMIA
     Dosage: 10 MG, 1X/DAY
  2. METOPROLOL TARTRATE [Concomitant]
     Dosage: 100 MG, 2X/DAY
  3. ACETYLSALICYLIC ACID [Concomitant]
     Dosage: 100 MG, 1X/DAY
  4. INSULIN ZINC SUSPENSION [Concomitant]
     Dosage: 22 AM, 12PM
  5. GLIBENCLAMIDE [Concomitant]
     Dosage: 5 MG, 2X/DAY
  6. AMLODIPINE [Concomitant]
     Dosage: 5 MG, 1X/DAY
  7. HYDROCHLOROTHIAZIDE [Concomitant]
     Dosage: 25 MG, 1X/DAY
  8. AMITRIPTYLINE [Concomitant]
     Dosage: 25 MG, 1X/DAY
  9. METFORMIN [Concomitant]
     Dosage: 850 MG, 2X/DAY
  10. LOSARTAN [Concomitant]
     Dosage: 50 MG, 2X/DAY

REACTIONS (5)
  - DEATH [None]
  - PARAESTHESIA [None]
  - LEFT VENTRICULAR FAILURE [None]
  - PAIN IN EXTREMITY [None]
  - MYOCARDIAL INFARCTION [None]
